FAERS Safety Report 8714776 (Version 2)
Quarter: 2016Q4

REPORT INFORMATION
  Report Type: Spontaneous
  Country: BR (occurrence: BR)
  Receive Date: 20120809
  Receipt Date: 20161108
  Transmission Date: 20170207
  Serious: Yes (Death, Congenital Anomaly, Other)
  Sender: FDA-Public Use
  Company Number: BR-MYLANLABS-2012S1015685

PATIENT

DRUGS (3)
  1. METHYLDOPA. [Concomitant]
     Active Substance: METHYLDOPA
     Dosage: UNK
     Route: 064
  2. LOSARTAN. [Suspect]
     Active Substance: LOSARTAN
     Dosage: UNK
     Route: 064
  3. MAGNESIUM SULFATE. [Concomitant]
     Active Substance: MAGNESIUM SULFATE
     Route: 064

REACTIONS (12)
  - Pulmonary hypoplasia [Fatal]
  - Cardiac arrest [Fatal]
  - Foetal malformation [Not Recovered/Not Resolved]
  - Muscle contracture [Not Recovered/Not Resolved]
  - Delayed fontanelle closure [Not Recovered/Not Resolved]
  - Dysmorphism [Not Recovered/Not Resolved]
  - Skull malformation [Not Recovered/Not Resolved]
  - Maternal exposure during pregnancy [Not Recovered/Not Resolved]
  - Renal aplasia [Not Recovered/Not Resolved]
  - Nephropathy toxic [Not Recovered/Not Resolved]
  - Thymus hypoplasia [Not Recovered/Not Resolved]
  - Oligohydramnios [Recovered/Resolved]
